FAERS Safety Report 25949479 (Version 4)
Quarter: 2025Q4

REPORT INFORMATION
  Report Type: Spontaneous
  Country: CN (occurrence: CN)
  Receive Date: 20251022
  Receipt Date: 20251126
  Transmission Date: 20260117
  Serious: Yes (Other)
  Sender: Kenvue
  Company Number: CN-KENVUE-20251008353

PATIENT
  Age: 26 Year

DRUGS (1)
  1. WOMENS ROGAINE UNSCENTED [Suspect]
     Active Substance: MINOXIDIL
     Indication: Alopecia
     Dosage: LESS THAN HALF A BOTTLE CAP; LESS THAN HALF BOTTLE CAP , ONCE A DAY (ABOUT THE BEGINNING OF  SEPTEMBER 2025; APPROXIMATELY EARLY SEPTEMBER 2025 )

REACTIONS (7)
  - Dermatitis allergic [Recovering/Resolving]
  - Incorrect dose administered [Unknown]
  - Chronic gastritis [Recovering/Resolving]
  - Alopecia [Recovering/Resolving]
  - Palpitations [Recovering/Resolving]
  - Dyspnoea [Recovering/Resolving]
  - Dizziness [Recovering/Resolving]
